FAERS Safety Report 17113954 (Version 1)
Quarter: 2019Q4

REPORT INFORMATION
  Report Type: Spontaneous
  Country: SE (occurrence: SE)
  Receive Date: 20191205
  Receipt Date: 20191205
  Transmission Date: 20200122
  Serious: Yes (Hospitalization)
  Sender: FDA-Public Use
  Company Number: SE-TEVA-2019-SE-1145963

PATIENT
  Age: 50 Year
  Sex: Female

DRUGS (5)
  1. MIRTAZAPINE. [Suspect]
     Active Substance: MIRTAZAPINE
     Dosage: 135 MILLIGRAM
     Route: 048
     Dates: start: 20180812, end: 20180812
  2. STESOLID [Suspect]
     Active Substance: DIAZEPAM
     Dosage: 40 MILLIGRAM
     Route: 048
     Dates: start: 20180812, end: 20180812
  3. PARACETAMOL [Suspect]
     Active Substance: ACETAMINOPHEN
     Dosage: 6-7 ST.
     Route: 048
     Dates: start: 20180812, end: 20180812
  4. NITRAZEPAM [Suspect]
     Active Substance: NITRAZEPAM
     Dosage: 30 MILLIGRAM
     Route: 048
     Dates: start: 20180812, end: 20180812
  5. LERGIGAN (PROMETHAZINE HYDROCHLORIDE) [Suspect]
     Active Substance: PROMETHAZINE HYDROCHLORIDE
     Dosage: 150 MILLIGRAM
     Route: 048
     Dates: start: 20180812, end: 20180812

REACTIONS (2)
  - Intentional overdose [Unknown]
  - Intentional self-injury [Unknown]

NARRATIVE: CASE EVENT DATE: 20180812
